FAERS Safety Report 10208589 (Version 18)
Quarter: 2017Q1

REPORT INFORMATION
  Report Type: Report from Study
  Country: AT (occurrence: AT)
  Receive Date: 20140530
  Receipt Date: 20170221
  Transmission Date: 20170428
  Serious: Yes (Hospitalization, Other)
  Sender: FDA-Public Use
  Company Number: AT-INCYTE CORPORATION-2014IN001453

PATIENT
  Age: 62 Year
  Sex: Male
  Weight: 66 kg

DRUGS (93)
  1. EPOETIN THETA [Concomitant]
     Active Substance: ERYTHROPOIETIN
     Dosage: 1 ML, QW IN THE MORNING
  2. EXFORGE [Concomitant]
     Active Substance: AMLODIPINE BESYLATE\VALSARTAN
     Indication: PRODUCT USED FOR UNKNOWN INDICATION
     Dosage: UNKNOWN
     Route: 065
  3. EXFORGE [Concomitant]
     Active Substance: AMLODIPINE BESYLATE\VALSARTAN
     Dosage: 1 DF, QD (5/160 MG)
     Route: 065
  4. CONCOR [Concomitant]
     Active Substance: BISOPROLOL FUMARATE
     Dosage: 5 MG, QD IN THE MORNING
  5. EUTHYROX [Concomitant]
     Active Substance: LEVOTHYROXINE SODIUM
     Dosage: 125 UG, QD IN THE MORNING
  6. EUTHYROX [Concomitant]
     Active Substance: LEVOTHYROXINE SODIUM
     Dosage: 125 UG, QD IN THE MORNING
  7. AQUAPHORIL [Concomitant]
     Indication: PRODUCT USED FOR UNKNOWN INDICATION
     Dosage: UNKNOWN
     Route: 065
  8. AQUAPHORIL [Concomitant]
     Dosage: 1 DF, QD IN THE MORNING
  9. AQUAPHORIL [Concomitant]
     Dosage: 1 DF, QD IN THE MORNING
  10. PANTOPRAZOL ALTAN [Concomitant]
     Indication: PRODUCT USED FOR UNKNOWN INDICATION
     Dosage: UNKNOWN
     Route: 065
  11. PANTOPRAZOL ALTAN [Concomitant]
     Dosage: 40 MG, QD IN THE MORNING
  12. PANTOPRAZOL ALTAN [Concomitant]
     Dosage: 40 MG, QD IN THE MORNING
  13. PANTOPRAZOL ALTAN [Concomitant]
     Dosage: 40 MG, QD IN THE MORNING
  14. UROSIN [Concomitant]
     Active Substance: ALLOPURINOL
     Dosage: 300 MG, QD AT NOONTIME
  15. NOVALGIN [Concomitant]
     Active Substance: METAMIZOLE SODIUM
     Indication: PRODUCT USED FOR UNKNOWN INDICATION
     Dosage: UNKNOWN
     Route: 065
  16. NOVALGIN [Concomitant]
     Active Substance: METAMIZOLE SODIUM
     Dosage: UNK
     Route: 065
  17. JAKAVI [Suspect]
     Active Substance: RUXOLITINIB
     Indication: MYELOFIBROSIS
     Dosage: 5 MG, BID, 1 IN THE MORNING, 1 IN THE EVENING
     Route: 048
     Dates: start: 20120307
  18. EPOETIN THETA [Concomitant]
     Active Substance: ERYTHROPOIETIN
     Dosage: 1 ML, QW IN THE MORNING
  19. EXFORGE [Concomitant]
     Active Substance: AMLODIPINE BESYLATE\VALSARTAN
     Dosage: 1 DF, QD (5/160 MG)
     Route: 065
  20. EUTHYROX [Concomitant]
     Active Substance: LEVOTHYROXINE SODIUM
     Dosage: 125 UG, QD IN THE MORNING
  21. FURON [Concomitant]
     Active Substance: FUROSEMIDE
     Indication: PRODUCT USED FOR UNKNOWN INDICATION
     Dosage: UNKNOWN
     Route: 065
  22. UROSIN [Concomitant]
     Active Substance: ALLOPURINOL
     Dosage: 300 MG, QD AT NOONTIME
  23. DREISACARB [Concomitant]
     Active Substance: CALCIUM CARBONATE
     Dosage: UNK
  24. OLEOVIT D3 [Concomitant]
     Active Substance: CHOLECALCIFEROL
     Dosage: 30 DRP, QW ON FRIDAYS
  25. OLEOVIT D3 [Concomitant]
     Active Substance: CHOLECALCIFEROL
     Dosage: 30 DRP, QW ON FRIDAYS
     Route: 065
  26. OLEOVIT D3 [Concomitant]
     Active Substance: CHOLECALCIFEROL
     Dosage: 30 DRP, QW ON FRIDAYS
     Route: 065
  27. LITALIR [Concomitant]
     Active Substance: HYDROXYUREA
     Indication: PRODUCT USED FOR UNKNOWN INDICATION
     Dosage: UNKNOWN
     Route: 065
     Dates: start: 1995
  28. EPOETIN THETA [Concomitant]
     Active Substance: ERYTHROPOIETIN
     Dosage: 1 ML, QW IN THE MORNING
  29. EPOETIN THETA [Concomitant]
     Active Substance: ERYTHROPOIETIN
     Dosage: 1 ML, QW IN THE MORNING
  30. EXFORGE [Concomitant]
     Active Substance: AMLODIPINE BESYLATE\VALSARTAN
     Dosage: 1 DF, QD (5/160 MG)
     Route: 065
  31. CONCOR [Concomitant]
     Active Substance: BISOPROLOL FUMARATE
     Indication: PRODUCT USED FOR UNKNOWN INDICATION
     Dosage: UNKNOWN
     Route: 065
  32. CONCOR [Concomitant]
     Active Substance: BISOPROLOL FUMARATE
     Dosage: 5 MG, QD IN THE MORNING
  33. EUTHYROX [Concomitant]
     Active Substance: LEVOTHYROXINE SODIUM
     Dosage: 125 UG, QD IN THE MORNING
  34. FURON [Concomitant]
     Active Substance: FUROSEMIDE
     Dosage: 40 MG, QD IN THE MORNING
  35. AQUAPHORIL [Concomitant]
     Dosage: 1 DF, QD IN THE MORNING
  36. PANTOPRAZOL ALTAN [Concomitant]
     Dosage: 40 MG, QD IN THE MORNING
  37. UROSIN [Concomitant]
     Active Substance: ALLOPURINOL
     Dosage: 300 MG, QD AT NOONTIME
  38. DREISACARB [Concomitant]
     Active Substance: CALCIUM CARBONATE
     Indication: PRODUCT USED FOR UNKNOWN INDICATION
     Dosage: 4 DF, QD 2 IN THE MORNING, 2 IN THE EVENING
     Route: 065
  39. OLEOVIT D3 [Concomitant]
     Active Substance: CHOLECALCIFEROL
     Dosage: 30 DRP, QW ON FRIDAYS
     Route: 065
  40. CONCOR [Concomitant]
     Active Substance: BISOPROLOL FUMARATE
     Dosage: 5 MG, QD IN THE MORNING
  41. CONCOR [Concomitant]
     Active Substance: BISOPROLOL FUMARATE
     Dosage: 5 MG, QD IN THE MORNING
  42. EUTHYROX [Concomitant]
     Active Substance: LEVOTHYROXINE SODIUM
     Indication: PRODUCT USED FOR UNKNOWN INDICATION
     Dosage: UNKNOWN
     Route: 065
  43. EUTHYROX [Concomitant]
     Active Substance: LEVOTHYROXINE SODIUM
     Dosage: 125 UG, QD IN THE MORNING
  44. FURON [Concomitant]
     Active Substance: FUROSEMIDE
     Dosage: 40 MG, QD IN THE MORNING
  45. FURON [Concomitant]
     Active Substance: FUROSEMIDE
     Dosage: 40 MG, QD IN THE MORNING
  46. AQUAPHORIL [Concomitant]
     Dosage: 1 DF, QD IN THE MORNING
  47. PANTOPRAZOL ALTAN [Concomitant]
     Dosage: 40 MG, QD IN THE MORNING
  48. PANTOPRAZOL ALTAN [Concomitant]
     Dosage: 40 MG, QD IN THE MORNING
  49. UROSIN [Concomitant]
     Active Substance: ALLOPURINOL
     Dosage: 300 MG, QD AT NOONTIME
  50. NOVALGIN [Concomitant]
     Active Substance: METAMIZOLE SODIUM
     Dosage: UNK
     Route: 065
  51. OLEOVIT D3 [Concomitant]
     Active Substance: CHOLECALCIFEROL
     Dosage: 30 DRP, QW ON FRIDAYS
  52. EPOETIN THETA [Concomitant]
     Active Substance: ERYTHROPOIETIN
     Indication: PRODUCT USED FOR UNKNOWN INDICATION
     Dosage: UNKNOWN
     Route: 065
  53. EXFORGE [Concomitant]
     Active Substance: AMLODIPINE BESYLATE\VALSARTAN
     Dosage: 1 DF, QD (5/160 MG)
     Route: 065
  54. EXFORGE [Concomitant]
     Active Substance: AMLODIPINE BESYLATE\VALSARTAN
     Dosage: 1 DF, QD (5/160 MG)
     Route: 065
  55. EXFORGE [Concomitant]
     Active Substance: AMLODIPINE BESYLATE\VALSARTAN
     Dosage: 1 DF, QD (5/160 MG)
     Route: 065
  56. EUTHYROX [Concomitant]
     Active Substance: LEVOTHYROXINE SODIUM
     Dosage: 125 UG, QD IN THE MORNING
  57. FURON [Concomitant]
     Active Substance: FUROSEMIDE
     Dosage: 40 MG, QD IN THE MORNING
  58. AQUAPHORIL [Concomitant]
     Dosage: 1 DF, QD IN THE MORNING
  59. AQUAPHORIL [Concomitant]
     Dosage: 1 DF, QD IN THE MORNING
  60. UROSIN [Concomitant]
     Active Substance: ALLOPURINOL
     Indication: PRODUCT USED FOR UNKNOWN INDICATION
     Dosage: UNKNOWN
     Route: 065
  61. UROSIN [Concomitant]
     Active Substance: ALLOPURINOL
     Dosage: 300 MG, QD AT NOONTIME
  62. OLEOVIT D3 [Concomitant]
     Active Substance: CHOLECALCIFEROL
     Dosage: 30 DRP, QW ON FRIDAYS
     Route: 065
  63. OLEOVIT D3 [Concomitant]
     Active Substance: CHOLECALCIFEROL
     Dosage: 30 DRP, QW ON FRIDAYS
     Route: 065
  64. EXFORGE [Concomitant]
     Active Substance: AMLODIPINE BESYLATE\VALSARTAN
     Dosage: 1 DF, QD (5/160 MG)
     Route: 065
  65. CONCOR [Concomitant]
     Active Substance: BISOPROLOL FUMARATE
     Dosage: 5 MG, QD IN THE MORNING
     Route: 065
  66. CONCOR [Concomitant]
     Active Substance: BISOPROLOL FUMARATE
     Dosage: 5 MG, QD IN THE MORNING
  67. FURON [Concomitant]
     Active Substance: FUROSEMIDE
     Dosage: 40 MG, QD IN THE MORNING
  68. NOVALGIN [Concomitant]
     Active Substance: METAMIZOLE SODIUM
     Route: 065
  69. EPOETIN THETA [Concomitant]
     Active Substance: ERYTHROPOIETIN
     Dosage: 1 ML, QW IN THE MORNING
  70. EPOETIN THETA [Concomitant]
     Active Substance: ERYTHROPOIETIN
     Dosage: 1 ML, QW IN THE MORNING
  71. EPOETIN THETA [Concomitant]
     Active Substance: ERYTHROPOIETIN
     Dosage: 1 ML, QW IN THE MORNING
  72. CONCOR [Concomitant]
     Active Substance: BISOPROLOL FUMARATE
     Dosage: 5 MG, QD IN THE MORNING
  73. EUTHYROX [Concomitant]
     Active Substance: LEVOTHYROXINE SODIUM
     Dosage: 125 UG, QD IN THE MORNING
  74. AQUAPHORIL [Concomitant]
     Dosage: 1 DF, QD IN THE MORNING
  75. UROSIN [Concomitant]
     Active Substance: ALLOPURINOL
     Dosage: 300 MG, QD AT NOONTIME
  76. DREISACARB [Concomitant]
     Active Substance: CALCIUM CARBONATE
  77. DREISACARB [Concomitant]
     Active Substance: CALCIUM CARBONATE
  78. OLEOVIT D3 [Concomitant]
     Active Substance: CHOLECALCIFEROL
     Indication: PRODUCT USED FOR UNKNOWN INDICATION
     Dosage: UNKNOWN
     Route: 065
  79. OLEOVIT D3 [Concomitant]
     Active Substance: CHOLECALCIFEROL
     Dosage: 30 DRP, QW ON FRIDAYS
  80. EPOETIN THETA [Concomitant]
     Active Substance: ERYTHROPOIETIN
     Dosage: 1 ML, QW IN THE MORNING
  81. EXFORGE [Concomitant]
     Active Substance: AMLODIPINE BESYLATE\VALSARTAN
     Dosage: 1 DF, QD
     Route: 065
  82. CONCOR [Concomitant]
     Active Substance: BISOPROLOL FUMARATE
     Dosage: 5 MG, QD IN THE MORNING
  83. EUTHYROX [Concomitant]
     Active Substance: LEVOTHYROXINE SODIUM
     Dosage: 125 UG, QD IN THE MORNING
  84. FURON [Concomitant]
     Active Substance: FUROSEMIDE
     Dosage: 40 MG, QD IN THE MORNING
  85. FURON [Concomitant]
     Active Substance: FUROSEMIDE
     Dosage: 40 MG, QD IN THE MORNING
  86. FURON [Concomitant]
     Active Substance: FUROSEMIDE
     Dosage: 40 MG, QD IN THE MORNING
  87. AQUAPHORIL [Concomitant]
     Dosage: 1 DF, QD IN THE MORNING
  88. PANTOPRAZOL ALTAN [Concomitant]
     Dosage: 40 MG, QD IN THE MORNING
  89. PANTOPRAZOL ALTAN [Concomitant]
     Dosage: 40 MG, QD IN THE MORNING
  90. UROSIN [Concomitant]
     Active Substance: ALLOPURINOL
     Dosage: 300 MG, QD AT NOONTIME
  91. UROSIN [Concomitant]
     Active Substance: ALLOPURINOL
     Dosage: 300 MG, QD AT NOONTIME
  92. NOVALGIN [Concomitant]
     Active Substance: METAMIZOLE SODIUM
     Route: 065
  93. NOVALGIN [Concomitant]
     Active Substance: METAMIZOLE SODIUM
     Route: 065

REACTIONS (13)
  - Portal vein thrombosis [Recovered/Resolved]
  - Peripheral swelling [Recovered/Resolved]
  - Rhinitis [Unknown]
  - Epistaxis [Recovered/Resolved]
  - Influenza [Recovered/Resolved]
  - Pancytopenia [Recovered/Resolved]
  - Flatulence [Recovered/Resolved]
  - Pancytopenia [Recovered/Resolved]
  - Thrombocytopenia [Recovered/Resolved]
  - Haematoma [Recovered/Resolved]
  - Nasopharyngitis [Recovered/Resolved]
  - Haemorrhagic diathesis [Recovered/Resolved]
  - Influenza [Recovered/Resolved]

NARRATIVE: CASE EVENT DATE: 201310
